FAERS Safety Report 19689096 (Version 1)
Quarter: 2021Q3

REPORT INFORMATION
  Report Type: Report from Study
  Country: None (occurrence: US)
  Receive Date: 20210812
  Receipt Date: 20210812
  Transmission Date: 20211014
  Serious: Yes (Other)
  Sender: FDA-Public Use
  Company Number: US-ABBVIE-21K-163-4032429-00

PATIENT
  Sex: Female

DRUGS (1)
  1. HUMIRA [Suspect]
     Active Substance: ADALIMUMAB
     Indication: RHEUMATOID ARTHRITIS
     Dosage: CF
     Route: 058

REACTIONS (8)
  - Surgical failure [Not Recovered/Not Resolved]
  - Fatigue [Unknown]
  - Suspected COVID-19 [Recovering/Resolving]
  - Cough [Unknown]
  - Mammoplasty [Not Recovered/Not Resolved]
  - Impaired healing [Not Recovered/Not Resolved]
  - Dyspnoea [Unknown]
  - Pyrexia [Unknown]
